FAERS Safety Report 8291271 (Version 3)
Quarter: 2013Q4

REPORT INFORMATION
  Report Type: Report from Study
  Country: CA (occurrence: CA)
  Receive Date: 20111214
  Receipt Date: 20131203
  Transmission Date: 20140711
  Serious: Yes (Other)
  Sender: FDA-Public Use
  Company Number: PHHY2011CA107804

PATIENT
  Sex: Female

DRUGS (5)
  1. ACLASTA [Suspect]
     Indication: OSTEOPOROSIS
     Dosage: UNK
     Route: 042
     Dates: start: 20081024
  2. ACLASTA [Suspect]
     Dosage: UNK
     Route: 042
     Dates: start: 20091201
  3. ACLASTA [Suspect]
     Dosage: UNK
     Route: 042
     Dates: start: 20101209
  4. ACLASTA [Suspect]
     Dosage: UNK
     Route: 042
     Dates: start: 20111221
  5. ACLASTA [Suspect]
     Dosage: UNK
     Route: 042
     Dates: start: 20121217

REACTIONS (1)
  - Deafness unilateral [Not Recovered/Not Resolved]
